FAERS Safety Report 8192380-9 (Version None)
Quarter: 2012Q1

REPORT INFORMATION
  Report Type: 
  Country: None (occurrence: None)
  Receive Date: 20120308
  Receipt Date: 20120222
  Transmission Date: 20120608
  Serious: Yes (Death)
  Sender: FDA-Public Use
  Company Number: JP-AMGEN-JPNSP2012008110

PATIENT
  Age: 77 Year
  Sex: Male

DRUGS (4)
  1. MUCOSTA [Concomitant]
     Indication: ULCER
     Dosage: UNK
     Route: 048
     Dates: start: 20110423, end: 20111130
  2. AZULFIDINE [Suspect]
     Indication: RHEUMATOID ARTHRITIS
     Dosage: UNK
     Route: 048
     Dates: start: 20080423, end: 20111130
  3. ENBREL [Suspect]
     Indication: RHEUMATOID ARTHRITIS
     Dosage: 50 MG, WEEKLY
     Route: 058
     Dates: start: 20080709, end: 20111130
  4. HYPEN                              /00613801/ [Concomitant]
     Indication: ULCER
     Dosage: UNK
     Route: 048
     Dates: start: 20110423, end: 20111130

REACTIONS (2)
  - RESPIRATORY FAILURE [None]
  - PNEUMONIA [None]
